FAERS Safety Report 14301794 (Version 1)
Quarter: 2017Q4

REPORT INFORMATION
  Report Type: Spontaneous
  Country: US (occurrence: US)
  Receive Date: 20171219
  Receipt Date: 20171219
  Transmission Date: 20180321
  Serious: No
  Sender: FDA-Public Use
  Company Number: US-SUPERNUS PHARMACEUTICALS, INC.-2016SUP00198

PATIENT
  Sex: Male
  Weight: 61.22 kg

DRUGS (9)
  1. OXTELLAR XR [Suspect]
     Active Substance: OXCARBAZEPINE
     Indication: TRIGEMINAL NEURALGIA
     Dosage: 300 MG, 2X/DAY
     Route: 048
     Dates: end: 20161019
  2. MELOXICAM. [Concomitant]
     Active Substance: MELOXICAM
  3. SUCRALFATE. [Concomitant]
     Active Substance: SUCRALFATE
  4. OXCARBAZEPINE (GLENMARK) [Suspect]
     Active Substance: OXCARBAZEPINE
     Indication: TRIGEMINAL NEURALGIA
     Dosage: 1 DOSAGE UNITS, 2X/DAY
     Route: 048
     Dates: start: 20161031, end: 201611
  5. LIDOCAINE PATCH [Concomitant]
     Active Substance: LIDOCAINE
  6. OXCARBAZEPINE (GLENMARK) [Suspect]
     Active Substance: OXCARBAZEPINE
     Dosage: 1 DOSAGE UNITS, 2X/DAY
     Route: 048
     Dates: start: 201611
  7. OMEPRAZOLE. [Concomitant]
     Active Substance: OMEPRAZOLE
  8. OXCARBAZEPINE (GLENMARK) [Suspect]
     Active Substance: OXCARBAZEPINE
     Indication: TRIGEMINAL NEURALGIA
     Dosage: 1 DOSAGE UNITS, 2X/DAY
     Route: 048
     Dates: start: 20161020, end: 20161030
  9. ROBAXIN [Concomitant]
     Active Substance: METHOCARBAMOL

REACTIONS (3)
  - Allergy to metals [Not Recovered/Not Resolved]
  - Off label use [Recovered/Resolved]
  - Pruritus [Recovered/Resolved]

NARRATIVE: CASE EVENT DATE: 2016
